FAERS Safety Report 7618564-3 (Version None)
Quarter: 2011Q3

REPORT INFORMATION
  Report Type: 
  Country: None (occurrence: None)
  Receive Date: 20110718
  Receipt Date: 20110711
  Transmission Date: 20111222
  Serious: Yes (Hospitalization)
  Sender: FDA-Public Use
  Company Number: DK-PFIZER INC-2011156463

PATIENT
  Age: 56 Year
  Sex: Male
  Weight: 67 kg

DRUGS (1)
  1. SUNITINIB MALATE [Suspect]
     Dosage: 50 MG, UNK
     Dates: start: 20081029, end: 20090914

REACTIONS (1)
  - DEHYDRATION [None]
